FAERS Safety Report 9298229 (Version 2)
Quarter: 2013Q3

REPORT INFORMATION
  Report Type: Spontaneous
  Country: US (occurrence: None)
  Receive Date: 20130515
  Receipt Date: 20130807
  Transmission Date: 20140515
  Serious: Yes (Other)
  Sender: FDA-Public Use
  Company Number: ADR-2013-00829

PATIENT
  Sex: Male

DRUGS (3)
  1. BACLOFEN [Suspect]
     Indication: MUSCLE SPASTICITY
     Dosage: SEE B5
  2. BACLOFEN [Suspect]
     Dosage: SEE B5
  3. ORAL BACLOFEN [Concomitant]

REACTIONS (9)
  - Fall [None]
  - Coma [None]
  - Device breakage [None]
  - Device kink [None]
  - Fatigue [None]
  - Asthenia [None]
  - Dizziness [None]
  - Musculoskeletal stiffness [None]
  - Gait disturbance [None]
